FAERS Safety Report 4914006-7 (Version None)
Quarter: 2006Q1

REPORT INFORMATION
  Report Type: 
  Country: None (occurrence: None)
  Receive Date: 20060210
  Receipt Date: 20060206
  Transmission Date: 20060701
  Serious: Yes (Disabling)
  Sender: FDA-Public Use
  Company Number: A0583289A

PATIENT
  Age: 14 Year
  Sex: Female
  Weight: 47.5823 kg

DRUGS (2)
  1. IMITREX [Suspect]
     Indication: MIGRAINE
     Dosage: SINGLE DOSE
     Dates: start: 20040101, end: 20040101
  2. AMITRIPTYLINE HCL [Concomitant]

REACTIONS (3)
  - CONDITION AGGRAVATED [None]
  - DRUG ADMINISTRATION ERROR [None]
  - HEADACHE [None]
